FAERS Safety Report 7711593-0 (Version None)
Quarter: 2011Q3

REPORT INFORMATION
  Report Type: 
  Country: None (occurrence: None)
  Receive Date: 20110826
  Receipt Date: 20110505
  Transmission Date: 20111222
  Serious: No
  Sender: FDA-Public Use
  Company Number: US-BRISTOL-MYERS SQUIBB COMPANY-15721970

PATIENT
  Age: 71 Year
  Sex: Female

DRUGS (1)
  1. ONGLYZA [Suspect]
     Dosage: AUTHORIZATION NO:22-350

REACTIONS (3)
  - HEADACHE [None]
  - MUSCLE SPASMS [None]
  - CONSTIPATION [None]
